FAERS Safety Report 20761738 (Version 1)
Quarter: 2022Q2

REPORT INFORMATION
  Report Type: Other
  Country: CN (occurrence: CN)
  Receive Date: 20220428
  Receipt Date: 20220428
  Transmission Date: 20220720
  Serious: Yes (Other)
  Sender: FDA-Public Use
  Company Number: CN-Blueprint Medicines Corporation-SO-CN-2022-001186

PATIENT

DRUGS (1)
  1. GAVRETO [Suspect]
     Active Substance: PRALSETINIB
     Indication: Product used for unknown indication
     Route: 048

REACTIONS (6)
  - Renal impairment [Unknown]
  - Rash erythematous [Unknown]
  - Pustule [Unknown]
  - Hepatic function abnormal [Unknown]
  - Cough [Unknown]
  - White blood cell count decreased [Unknown]
